FAERS Safety Report 10734878 (Version 2)
Quarter: 2015Q1

REPORT INFORMATION
  Report Type: Report from Study
  Country: KR (occurrence: KR)
  Receive Date: 20150123
  Receipt Date: 20150203
  Transmission Date: 20150721
  Serious: Yes (Hospitalization)
  Sender: FDA-Public Use
  Company Number: KR-AMGEN-KORCT2015005400

PATIENT
  Age: 48 Year
  Sex: Female
  Weight: 68.1 kg

DRUGS (10)
  1. DOXORUBICIN [Concomitant]
     Active Substance: DOXORUBICIN
     Dosage: 87 MG, UNK
     Route: 042
     Dates: start: 20141217, end: 20141217
  2. GRANISETRON [Concomitant]
     Active Substance: GRANISETRON
     Dosage: 34.3 MG, UNK
     Route: 065
     Dates: start: 20141216
  3. PEGFILGRASTIM [Suspect]
     Active Substance: PEGFILGRASTIM
     Indication: NEUTROPENIA
     Dosage: 6 MG, Q3WK
     Route: 058
     Dates: start: 20141218
  4. CYCLOPHOSPHAMIDE. [Concomitant]
     Active Substance: CYCLOPHOSPHAMIDE
     Dosage: 870 MG, UNK
     Route: 042
     Dates: start: 20141217, end: 20141217
  5. GABAPENTIN. [Concomitant]
     Active Substance: GABAPENTIN
     Dosage: 300 MG, UNK
     Route: 048
     Dates: start: 20141217
  6. MAGNESIUM HYDROXIDE. [Concomitant]
     Active Substance: MAGNESIUM HYDROXIDE
     Dosage: 1 G, UNK
     Route: 048
     Dates: start: 20141220, end: 20141223
  7. ULTRACET SEMI [Concomitant]
     Dosage: 2TAB,UNK
     Route: 048
     Dates: start: 20141221, end: 20141230
  8. TRAMADOL HYDROCHLORIDE. [Concomitant]
     Active Substance: TRAMADOL HYDROCHLORIDE
     Dosage: 50 MG, UNK
     Route: 042
     Dates: start: 20141219, end: 20141222
  9. DOCETAXEL. [Concomitant]
     Active Substance: DOCETAXEL
     Dosage: 130.5 MG, UNK
     Route: 042
     Dates: start: 20141217, end: 20141217
  10. CEFTRIAXONE SODIUM. [Concomitant]
     Active Substance: CEFTRIAXONE SODIUM
     Dosage: 2 G, UNK
     Route: 042
     Dates: start: 20141220, end: 20141226

REACTIONS (2)
  - Myalgia [Recovered/Resolved]
  - Neutropenia [Recovered/Resolved]

NARRATIVE: CASE EVENT DATE: 20141219
